FAERS Safety Report 4538894-1 (Version None)
Quarter: 2004Q4

REPORT INFORMATION
  Report Type: 
  Country: None (occurrence: None)
  Receive Date: 20041227
  Receipt Date: 20041203
  Transmission Date: 20050328
  Serious: Yes (Hospitalization)
  Sender: FDA-Public Use
  Company Number: JP-ABBOTT-04P-087-0282392-00

PATIENT
  Age: 71 Year
  Sex: Male
  Weight: 50 kg

DRUGS (10)
  1. CLARITH [Suspect]
     Indication: UPPER RESPIRATORY TRACT INFLAMMATION
     Route: 048
     Dates: start: 20040401, end: 20040402
  2. THEOPHYLLINE [Concomitant]
     Indication: UPPER RESPIRATORY TRACT INFLAMMATION
     Route: 048
     Dates: start: 20040401, end: 20040402
  3. L-CARBOCISTEINE [Concomitant]
     Indication: UPPER RESPIRATORY TRACT INFLAMMATION
     Route: 048
     Dates: start: 20040401, end: 20040402
  4. IBUPROFEN [Concomitant]
     Indication: UPPER RESPIRATORY TRACT INFLAMMATION
     Route: 048
     Dates: start: 20040326, end: 20040330
  5. DEXTROMETHORPHAN HYDROBROMIDE [Concomitant]
     Indication: UPPER RESPIRATORY TRACT INFLAMMATION
     Route: 048
     Dates: start: 20040326, end: 20040330
  6. DEXTROMETHORPHAN HYDROBROMIDE [Concomitant]
     Route: 048
     Dates: start: 20040401, end: 20040402
  7. AMBROXOL HYDROCHLORIDE [Concomitant]
     Indication: UPPER RESPIRATORY TRACT INFLAMMATION
     Route: 048
     Dates: start: 20040326, end: 20040330
  8. INDOMETHACIN [Concomitant]
     Indication: UPPER RESPIRATORY TRACT INFLAMMATION
     Route: 062
     Dates: start: 20040326
  9. PLANTAGO HERB EXTRACT [Concomitant]
     Indication: UPPER RESPIRATORY TRACT INFLAMMATION
     Route: 048
     Dates: start: 20040401, end: 20040402
  10. METHYLEPHEDRINE HYDROCHLORIDE-DL [Concomitant]
     Indication: UPPER RESPIRATORY TRACT INFLAMMATION
     Route: 048
     Dates: start: 20040401, end: 20040402

REACTIONS (4)
  - ASTHENIA [None]
  - HYPONATRAEMIA [None]
  - TREMOR [None]
  - VOMITING [None]
